FAERS Safety Report 4913754-2 (Version None)
Quarter: 2006Q1

REPORT INFORMATION
  Report Type: 
  Country: None (occurrence: None)
  Receive Date: 20060210
  Receipt Date: 20060127
  Transmission Date: 20060701
  Serious: Yes (Death)
  Sender: FDA-Public Use
  Company Number: 2006US-01553

PATIENT
  Age: 26 Year
  Sex: Male

DRUGS (4)
  1. LOPERAMIDE HCL [Suspect]
  2. LITHIUM [Concomitant]
  3. TRAZODONE [Concomitant]
  4. ARIPRAZOLE [Concomitant]

REACTIONS (8)
  - ALCOHOL POISONING [None]
  - GRANULOMA [None]
  - HEPATITIS [None]
  - HYPERTENSIVE HEART DISEASE [None]
  - LOSS OF CONSCIOUSNESS [None]
  - MULTIPLE DRUG OVERDOSE [None]
  - OESOPHAGITIS [None]
  - SPLEEN DISORDER [None]
